FAERS Safety Report 21741505 (Version 1)
Quarter: 2022Q4

REPORT INFORMATION
  Report Type: Report from Study
  Country: US (occurrence: US)
  Receive Date: 20221216
  Receipt Date: 20221216
  Transmission Date: 20230112
  Serious: No
  Sender: FDA-Public Use
  Company Number: US-ABBVIE-4236127

PATIENT
  Sex: Female

DRUGS (2)
  1. DUOPA [Suspect]
     Active Substance: CARBIDOPA\LEVODOPA
     Indication: Product used for unknown indication
     Dates: start: 20221026
  2. DUOPA [Suspect]
     Active Substance: CARBIDOPA\LEVODOPA

REACTIONS (4)
  - Pain [Not Recovered/Not Resolved]
  - Stoma site haemorrhage [Recovering/Resolving]
  - Restless legs syndrome [Unknown]
  - Stoma site discharge [Recovering/Resolving]

NARRATIVE: CASE EVENT DATE: 20220101
